FAERS Safety Report 11329424 (Version 1)
Quarter: 2015Q3

REPORT INFORMATION
  Report Type: Spontaneous
  Country: JP (occurrence: JP)
  Receive Date: 20150803
  Receipt Date: 20150803
  Transmission Date: 20151125
  Serious: Yes (Hospitalization)
  Sender: FDA-Public Use
  Company Number: JP-ACCORD-032565

PATIENT
  Age: 48 Year
  Sex: Male

DRUGS (5)
  1. CICLOSPORIN [Suspect]
     Active Substance: CYCLOSPORINE
     Indication: IMMUNOSUPPRESSION
     Dosage: PREVIOUSLY RECEIVED 130 MG PER DAY
  2. PREDNISOLONE. [Suspect]
     Active Substance: PREDNISOLONE
     Indication: IMMUNOSUPPRESSION
     Dosage: PREVIOUSLY RECEIVED 650 MG INTRAVENOUSLY THAN RECEIVED 15 MG PER DAY
  3. RITUXIMAB [Suspect]
     Active Substance: RITUXIMAB
     Indication: ABO INCOMPATIBILITY
     Dosage: 500 MG/ BODY
  4. TACROLIMUS. [Suspect]
     Active Substance: TACROLIMUS
     Indication: IMMUNOSUPPRESSION
  5. MYCOPHENOLIC ACID. [Suspect]
     Active Substance: MYCOPHENOLIC ACID
     Indication: IMMUNOSUPPRESSION
     Dosage: PREVIOUSLY RECEIVED 2000 MG PER DAY

REACTIONS (3)
  - Cellulitis [Recovered/Resolved]
  - Bacteraemia [Recovered/Resolved]
  - Hepatitis C [Unknown]
